FAERS Safety Report 5631906-3 (Version None)
Quarter: 2008Q1

REPORT INFORMATION
  Report Type: 
  Country: None (occurrence: None)
  Receive Date: 20080220
  Receipt Date: 20080208
  Transmission Date: 20080703
  Serious: Yes (Hospitalization)
  Sender: FDA-Public Use
  Company Number: SE-AMGEN-US228719

PATIENT
  Age: 62 Year
  Sex: Male

DRUGS (6)
  1. ENBREL [Suspect]
     Indication: RHEUMATOID ARTHRITIS
     Route: 065
     Dates: start: 20050501
  2. ENALAPRIL MALEATE [Concomitant]
     Route: 065
  3. CALCIUM WITH VITAMIN D [Concomitant]
     Route: 065
  4. SIMVASTATIN [Concomitant]
     Route: 065
  5. FOSAMAX [Concomitant]
     Route: 065
  6. ASPIRIN [Concomitant]
     Route: 065

REACTIONS (1)
  - RETINAL DETACHMENT [None]
